FAERS Safety Report 11473558 (Version 1)
Quarter: 2015Q3

REPORT INFORMATION
  Report Type: Spontaneous
  Country: US (occurrence: None)
  Receive Date: 20150908
  Receipt Date: 20150908
  Transmission Date: 20151125
  Serious: No
  Sender: FDA-Public Use
  Company Number: None

PATIENT
  Age: 91 Year
  Sex: Male

DRUGS (6)
  1. ATENOLOL. [Concomitant]
     Active Substance: ATENOLOL
  2. LISINOPRIL. [Concomitant]
     Active Substance: LISINOPRIL
  3. MULT VIT TAB [Concomitant]
  4. GLEEVEC [Suspect]
     Active Substance: IMATINIB MESYLATE
     Indication: ABDOMINAL WALL NEOPLASM MALIGNANT
     Route: 048
     Dates: start: 201508
  5. FISH OIL [Concomitant]
     Active Substance: FISH OIL
  6. LEVOTHYROXIN [Concomitant]
     Active Substance: LEVOTHYROXINE

REACTIONS (2)
  - Muscular weakness [None]
  - Nausea [None]
